FAERS Safety Report 12586513 (Version 1)
Quarter: 2016Q3

REPORT INFORMATION
  Report Type: Spontaneous
  Country: US (occurrence: US)
  Receive Date: 20160725
  Receipt Date: 20160725
  Transmission Date: 20161109
  Serious: No
  Sender: FDA-Public Use
  Company Number: US-PFIZER INC-2016323613

PATIENT
  Age: 67 Year
  Sex: Female

DRUGS (1)
  1. IBRANCE [Suspect]
     Active Substance: PALBOCICLIB
     Indication: BREAST CANCER
     Dosage: 75 MG, CYCLIC (DAILY 21D ON 7D OFF)
     Route: 048
     Dates: start: 20150613

REACTIONS (3)
  - Arthralgia [Unknown]
  - Onychoclasis [Unknown]
  - Alopecia [Unknown]

NARRATIVE: CASE EVENT DATE: 20160628
